FAERS Safety Report 7682893-8 (Version None)
Quarter: 2011Q3

REPORT INFORMATION
  Report Type: 
  Country: None (occurrence: None)
  Receive Date: 20110812
  Receipt Date: 20110812
  Transmission Date: 20111222
  Serious: Yes (Death, Life-Threatening, Hospitalization, Disabling, Other)
  Sender: FDA-Public Use
  Company Number: None

PATIENT
  Sex: Male
  Weight: 70.3075 kg

DRUGS (8)
  1. COUMADIN [Suspect]
     Indication: ANTICOAGULANT THERAPY
     Dosage: 3 TABLETS OR 3MG BY MOUTH EVERY NIGHT AT BEDTIME PER DOCTOR THOMAS MATHEW VIA PHONE CALL ON 10/26/10
     Route: 048
     Dates: start: 20101028, end: 20101116
  2. LANTUS [Suspect]
     Indication: DIABETES MELLITUS
     Dosage: INJECT 15 UNITS UNDER SKIN EVERY NIGHT @BEDTIME 100 UNITS/ML PEN INJECTION
     Route: 059
     Dates: start: 20101022, end: 20101104
  3. SIMVASTATIN [Suspect]
     Indication: BLOOD CHOLESTEROL
     Dosage: 1 TABLET BY MOUTH AT BEDTIME
     Route: 048
     Dates: start: 20101023, end: 20101116
  4. COUMADIN [Suspect]
     Indication: ANTICOAGULANT THERAPY
     Dosage: 1 TABLET  BY MOUTH EVERY NIGHT AT BEDTIME
     Route: 048
     Dates: start: 20101023, end: 20101026
  5. ASPIRIN [Suspect]
     Dosage: 1 TABLET BY MOUTH DAILY
     Route: 048
     Dates: start: 20101023, end: 20101116
  6. RAMIPRIL [Suspect]
     Indication: BLOOD PRESSURE
     Dosage: 1 CAPSULE BY MOUTH DAILY
     Route: 048
     Dates: start: 20101022, end: 20101116
  7. LOPRESSOR [Suspect]
     Indication: HEART RATE
     Dosage: 1 TABLET 2X A DAY BY MOUTH
     Route: 048
     Dates: start: 20101028, end: 20101116
  8. LOPRESSOR [Suspect]
     Indication: BLOOD PRESSURE
     Dosage: 1 TABLET 2X A DAY BY MOUTH
     Route: 048
     Dates: start: 20101028, end: 20101116

REACTIONS (9)
  - HEART RATE DECREASED [None]
  - GAIT DISTURBANCE [None]
  - SWELLING FACE [None]
  - FLUSHING [None]
  - GASTRIC DISORDER [None]
  - OEDEMA PERIPHERAL [None]
  - SWELLING [None]
  - DRUG DEPENDENCE [None]
  - CARDIO-RESPIRATORY ARREST [None]
